FAERS Safety Report 11908286 (Version 1)
Quarter: 2016Q1

REPORT INFORMATION
  Report Type: Spontaneous
  Country: US (occurrence: US)
  Receive Date: 20160111
  Receipt Date: 20160111
  Transmission Date: 20160526
  Serious: No
  Sender: FDA-Public Use
  Company Number: US-PFIZER INC-2015459683

PATIENT
  Sex: Male
  Weight: 81.65 kg

DRUGS (1)
  1. CHANTIX [Suspect]
     Active Substance: VARENICLINE TARTRATE
     Indication: SMOKING CESSATION THERAPY
     Dosage: 1 MG, 2X/DAY
     Route: 048
     Dates: start: 20131018, end: 2013

REACTIONS (3)
  - Nightmare [Recovered/Resolved]
  - Abnormal dreams [Recovered/Resolved]
  - Tobacco user [Not Recovered/Not Resolved]

NARRATIVE: CASE EVENT DATE: 2013
